FAERS Safety Report 23149844 (Version 2)
Quarter: 2023Q4

REPORT INFORMATION
  Report Type: Report from Study
  Country: MX (occurrence: MX)
  Receive Date: 20231106
  Receipt Date: 20231118
  Transmission Date: 20240110
  Serious: Yes (Other)
  Sender: FDA-Public Use
  Company Number: MX-002147023-NVSC2023MX235100

PATIENT
  Age: 89 Year
  Sex: Female
  Weight: 60 kg

DRUGS (6)
  1. MYFORTIC [Suspect]
     Active Substance: MYCOPHENOLATE SODIUM
     Indication: Dermatomyositis
     Dosage: 1 DOSAGE FORM, TID
     Route: 048
     Dates: start: 20221124
  2. MYFORTIC [Suspect]
     Active Substance: MYCOPHENOLATE SODIUM
     Dosage: 1 DOSAGE FORM, Q12H
     Route: 048
     Dates: start: 20221124
  3. MYFORTIC [Suspect]
     Active Substance: MYCOPHENOLATE SODIUM
     Dosage: 1 DOSAGE FORM, Q8H
     Route: 048
  4. EXFORGE [Suspect]
     Active Substance: AMLODIPINE BESYLATE\VALSARTAN
     Indication: Hypertension
     Dosage: 5 DOSAGE FORM, QD
     Route: 048
  5. METICORTEN [Concomitant]
     Active Substance: PREDNISONE
     Indication: Hypoaesthesia
     Dosage: UNK, QD
     Route: 048
  6. METICORTEN [Concomitant]
     Active Substance: PREDNISONE
     Indication: Monoplegia

REACTIONS (8)
  - Thrombosis [Recovering/Resolving]
  - Wound [Recovering/Resolving]
  - Skin lesion [Recovering/Resolving]
  - Gait inability [Recovering/Resolving]
  - Limb discomfort [Unknown]
  - Off label use [Unknown]
  - Oedema peripheral [Recovering/Resolving]
  - Fluid retention [Recovering/Resolving]

NARRATIVE: CASE EVENT DATE: 20230601
